FAERS Safety Report 10447487 (Version 1)
Quarter: 2014Q3

REPORT INFORMATION
  Report Type: Spontaneous
  Country: US (occurrence: US)
  Receive Date: 20140911
  Receipt Date: 20140911
  Transmission Date: 20150326
  Serious: No
  Sender: FDA-Public Use
  Company Number: US-BEH-2014040755

PATIENT
  Sex: Female
  Weight: 56 kg

DRUGS (10)
  1. ZEMAIRA [Suspect]
     Active Substance: .ALPHA.1-PROTEINASE INHIBITOR HUMAN
     Indication: EMPHYSEMA
     Dosage: 998 MG/VIAL;0.08 ML/KG/MIN (4.5 ML/MIN)
     Route: 042
  2. VITAMIN D [Concomitant]
     Active Substance: CHOLECALCIFEROL
  3. SODIUM CHLORIDE. [Concomitant]
     Active Substance: SODIUM CHLORIDE
  4. LMX [Concomitant]
     Active Substance: LIDOCAINE
  5. VAGIFEM [Concomitant]
     Active Substance: ESTRADIOL
  6. MOTRIN [Concomitant]
     Active Substance: IBUPROFEN
  7. ZEMAIRA [Suspect]
     Active Substance: .ALPHA.1-PROTEINASE INHIBITOR HUMAN
     Indication: EMPHYSEMA
     Dosage: 998 MG/VIAL;0.08 ML/KG/MIN (4.5 ML/MIN)
     Route: 042
  8. FISH OIL [Concomitant]
     Active Substance: FISH OIL
  9. DIPHENHYDRAMINE [Concomitant]
     Active Substance: DIPHENHYDRAMINE
  10. EPIPEN [Concomitant]
     Active Substance: EPINEPHRINE

REACTIONS (2)
  - Headache [Unknown]
  - Migraine [Unknown]
